FAERS Safety Report 7085437-7 (Version None)
Quarter: 2010Q4

REPORT INFORMATION
  Report Type: 
  Country: None (occurrence: None)
  Receive Date: 20101105
  Receipt Date: 20101102
  Transmission Date: 20110411
  Serious: Yes (Other)
  Sender: FDA-Public Use
  Company Number: US-PFIZER INC-2010139711

PATIENT
  Sex: Female
  Weight: 66.1 kg

DRUGS (14)
  1. TIKOSYN [Suspect]
     Indication: ARRHYTHMIA
     Dosage: 125 MCG, 2X/DAY
     Route: 048
  2. TIKOSYN [Suspect]
     Indication: ATRIAL FLUTTER
  3. CIPROFLOXACIN [Concomitant]
     Dosage: UNK
  4. VANCOMYCIN [Concomitant]
     Dosage: UNK
  5. ZOSYN [Concomitant]
     Dosage: UNK
  6. HYDRALAZINE [Concomitant]
     Indication: HYPERTENSION
     Dosage: UNK
  7. NORVASC [Concomitant]
     Indication: HYPERTENSION
     Dosage: UNK
  8. ZOCOR [Concomitant]
     Indication: BLOOD CHOLESTEROL INCREASED
     Dosage: UNK
  9. COUMADIN [Concomitant]
     Indication: ATRIAL FIBRILLATION
     Dosage: UNK
  10. LOVENOX [Concomitant]
     Dosage: UNK
  11. SYNTHROID [Concomitant]
     Dosage: UNK
  12. IMDUR [Concomitant]
     Dosage: UNK
  13. COLACE [Concomitant]
     Dosage: UNK
  14. MILK OF MAGNESIA TAB [Concomitant]
     Dosage: UNK

REACTIONS (3)
  - BLOOD CREATININE INCREASED [None]
  - CREATININE RENAL CLEARANCE INCREASED [None]
  - RENAL IMPAIRMENT [None]
